FAERS Safety Report 11384702 (Version 1)
Quarter: 2015Q3

REPORT INFORMATION
  Report Type: Spontaneous
  Country: US (occurrence: US)
  Receive Date: 20150811
  Receipt Date: 20150811
  Transmission Date: 20151125
  Serious: No
  Sender: FDA-Public Use
  Company Number: US-ELI_LILLY_AND_COMPANY-US201107006832

PATIENT
  Age: 81 Year
  Sex: Female
  Weight: 56.69 kg

DRUGS (13)
  1. SPIRIVA [Concomitant]
     Active Substance: TIOTROPIUM BROMIDE MONOHYDRATE
  2. MULTIVITAMIN [Concomitant]
     Active Substance: VITAMINS
  3. TRIAMTERENE. [Concomitant]
     Active Substance: TRIAMTERENE
  4. METOPROLOL [Concomitant]
     Active Substance: METOPROLOL
  5. THEOPHYLLINE [Concomitant]
     Active Substance: THEOPHYLLINE ANHYDROUS
  6. PREDNISONE. [Concomitant]
     Active Substance: PREDNISONE
  7. DIOVAN [Concomitant]
     Active Substance: VALSARTAN
     Dosage: 1 DF, BID
  8. OXYGEN. [Concomitant]
     Active Substance: OXYGEN
     Dosage: 1 DF, OTHER
  9. COUMADIN [Concomitant]
     Active Substance: WARFARIN SODIUM
  10. BUDESONIDE. [Concomitant]
     Active Substance: BUDESONIDE
  11. FLAXSEED [Concomitant]
     Active Substance: FLAX SEED
  12. LEVOCETIRIZINE [Concomitant]
     Active Substance: LEVOCETIRIZINE
     Dosage: 5 MG, UNKNOWN
  13. ADCIRCA [Suspect]
     Active Substance: TADALAFIL
     Indication: PULMONARY HYPERTENSION
     Dosage: 40 MG, QD
     Dates: start: 20110720

REACTIONS (2)
  - Neck pain [Recovering/Resolving]
  - Musculoskeletal pain [Recovering/Resolving]

NARRATIVE: CASE EVENT DATE: 20110721
